FAERS Safety Report 20554487 (Version 1)
Quarter: 2022Q1

REPORT INFORMATION
  Report Type: Spontaneous
  Country: PT (occurrence: PT)
  Receive Date: 20220304
  Receipt Date: 20220304
  Transmission Date: 20220424
  Serious: Yes (Other)
  Sender: FDA-Public Use
  Company Number: None

PATIENT
  Age: 73 Year
  Sex: Male

DRUGS (1)
  1. VELCADE [Suspect]
     Active Substance: BORTEZOMIB
     Indication: Plasma cell myeloma
     Dosage: 1 MILLIGRAM/SQ. METER
     Route: 058
     Dates: start: 20210321

REACTIONS (3)
  - Localised oedema [Unknown]
  - Neuropathy peripheral [Unknown]
  - Rash [Unknown]

NARRATIVE: CASE EVENT DATE: 20210614
